FAERS Safety Report 4842165-3 (Version None)
Quarter: 2005Q4

REPORT INFORMATION
  Report Type: 
  Country: None (occurrence: None)
  Receive Date: 20051130
  Receipt Date: 20051122
  Transmission Date: 20060501
  Serious: Yes (Other)
  Sender: FDA-Public Use
  Company Number: US-MERCK-0511USA03979

PATIENT
  Sex: Female

DRUGS (1)
  1. FOSAMAX [Suspect]
     Route: 048
     Dates: start: 19970101

REACTIONS (5)
  - BREAST CANCER [None]
  - JAW DISORDER [None]
  - PAIN IN JAW [None]
  - TOOTH DISORDER [None]
  - TOOTH EXTRACTION [None]
